FAERS Safety Report 9159668 (Version 1)
Quarter: 2013Q1

REPORT INFORMATION
  Report Type: Spontaneous
  Country: JP (occurrence: JP)
  Receive Date: 20130313
  Receipt Date: 20130313
  Transmission Date: 20140127
  Serious: No
  Sender: FDA-Public Use
  Company Number: JP-ELI_LILLY_AND_COMPANY-JP201302007913

PATIENT
  Age: 69 Year
  Sex: Male

DRUGS (1)
  1. CIALIS [Suspect]
     Route: 065

REACTIONS (6)
  - Product counterfeit [Unknown]
  - Mydriasis [Unknown]
  - Glare [Unknown]
  - Abdominal distension [Unknown]
  - Palpitations [Unknown]
  - Drug ineffective [Unknown]
